FAERS Safety Report 24728952 (Version 3)
Quarter: 2024Q4

REPORT INFORMATION
  Report Type: Spontaneous
  Country: GR (occurrence: GR)
  Receive Date: 20241212
  Receipt Date: 20241228
  Transmission Date: 20250114
  Serious: Yes (Hospitalization, Other)
  Sender: ACCORD
  Company Number: GR-Accord-459165

PATIENT
  Age: 23 Year
  Sex: Female
  Weight: 56 kg

DRUGS (1)
  1. METHOTREXATE [Suspect]
     Active Substance: METHOTREXATE
     Indication: Ectopic pregnancy
     Dosage: TRANSVAGINAL ULTRASOUND-GUIDED INTRAGESTATIONAL INJECTION??ADJUSTED TO 50 MG/M2 BODY SURFACE AREA

REACTIONS (17)
  - Toxicity to various agents [Unknown]
  - Pyrexia [Recovered/Resolved]
  - Rash pruritic [Recovered/Resolved]
  - Febrile neutropenia [Recovered/Resolved]
  - Pancytopenia [Recovered/Resolved]
  - Alopecia [Recovered/Resolved]
  - Myelosuppression [Recovered/Resolved]
  - Mouth ulceration [Recovered/Resolved]
  - Blister [Recovered/Resolved]
  - Rash maculo-papular [Recovered/Resolved]
  - Oropharyngeal pain [Recovered/Resolved]
  - Stomatitis [Recovered/Resolved]
  - Odynophagia [Recovered/Resolved]
  - Salivary hypersecretion [Recovered/Resolved]
  - Neutropenia [Recovered/Resolved]
  - Off label use [Unknown]
  - Rash [Recovered/Resolved]
